FAERS Safety Report 8286665-5 (Version None)
Quarter: 2012Q2

REPORT INFORMATION
  Report Type: 
  Country: None (occurrence: None)
  Receive Date: 20120416
  Receipt Date: 20120406
  Transmission Date: 20120825
  Serious: Yes (Other)
  Sender: FDA-Public Use
  Company Number: US-JNJFOC-20120403506

PATIENT
  Sex: Male
  Weight: 79.38 kg

DRUGS (4)
  1. OXYCODONE HCL [Concomitant]
     Indication: PAIN
     Route: 048
  2. DURAGESIC-100 [Suspect]
     Indication: BACK PAIN
     Route: 062
  3. DURAGESIC-100 [Suspect]
     Route: 062
     Dates: start: 20090101
  4. LYRICA [Concomitant]
     Indication: PAIN
     Route: 048

REACTIONS (9)
  - HYPERHIDROSIS [None]
  - PRODUCT ODOUR ABNORMAL [None]
  - TINNITUS [None]
  - DRUG EFFECT INCREASED [None]
  - DEVICE LEAKAGE [None]
  - OVERDOSE [None]
  - RESPIRATORY RATE DECREASED [None]
  - DRUG ADMINISTRATION ERROR [None]
  - HEART RATE INCREASED [None]
